FAERS Safety Report 15920910 (Version 2)
Quarter: 2019Q1

REPORT INFORMATION
  Report Type: Spontaneous
  Country: JP (occurrence: JP)
  Receive Date: 20190205
  Receipt Date: 20190210
  Transmission Date: 20190417
  Serious: Yes (Hospitalization)
  Sender: FDA-Public Use
  Company Number: GXJP2019JP000510

PATIENT
  Age: 68 Year
  Sex: Female
  Weight: 65 kg

DRUGS (8)
  1. CARVEDILOL. [Concomitant]
     Active Substance: CARVEDILOL
     Indication: PRODUCT USED FOR UNKNOWN INDICATION
     Dosage: 1.25 MG, BID (AFTER BREAKFAST AND DINNER)
     Route: 048
  2. ACETYLSALICYLIC ACID [Concomitant]
     Active Substance: ASPIRIN
     Indication: PRODUCT USED FOR UNKNOWN INDICATION
     Dosage: 100 MG, QD (AFTER BREAKFAST)
     Route: 048
  3. FUROSEMIDE. [Concomitant]
     Active Substance: FUROSEMIDE
     Indication: PRODUCT USED FOR UNKNOWN INDICATION
     Dosage: 40 MG, QD (AFTER BREAKFAST)
     Route: 042
  4. VALSARTAN. [Concomitant]
     Active Substance: VALSARTAN
     Indication: PRODUCT USED FOR UNKNOWN INDICATION
     Dosage: 40 MG, QD (AFTER BREAKFAST)
     Route: 048
  5. ATORVASTATIN [Concomitant]
     Active Substance: ATORVASTATIN
     Indication: PRODUCT USED FOR UNKNOWN INDICATION
     Dosage: 100 MG, QD (AFTER DINNER)
     Route: 048
  6. CANAGLIFLOZIN HEMIHYDRATE [Concomitant]
     Active Substance: CANAGLIFLOZIN
     Indication: PRODUCT USED FOR UNKNOWN INDICATION
     Dosage: 100 MG, QD (AFTER BREAKFAST)
     Route: 048
  7. PIOGLITAZONE TABLETS [Suspect]
     Active Substance: PIOGLITAZONE
     Indication: TYPE 2 DIABETES MELLITUS
     Dosage: 30 MG, QD (AFTER BREAKFAST)
     Route: 048
  8. WARFARIN POTASSIUM [Concomitant]
     Active Substance: WARFARIN POTASSIUM
     Indication: PRODUCT USED FOR UNKNOWN INDICATION
     Dosage: 3 MG, QD (AFTER DINNER)
     Route: 048

REACTIONS (6)
  - Atrial fibrillation [Unknown]
  - Dyspnoea [Unknown]
  - Cardiac failure [Unknown]
  - Oedema peripheral [Recovering/Resolving]
  - Left ventricular hypertrophy [Unknown]
  - Pleural effusion [Recovering/Resolving]
